FAERS Safety Report 23882244 (Version 1)
Quarter: 2024Q2

REPORT INFORMATION
  Report Type: Spontaneous
  Country: DE (occurrence: DE)
  Receive Date: 20240522
  Receipt Date: 20240522
  Transmission Date: 20240716
  Serious: No
  Sender: FDA-Public Use
  Company Number: DE-WT-2024-0179

PATIENT
  Age: 69 Year
  Sex: Female
  Weight: 80 kg

DRUGS (4)
  1. ESZOPICLONE [Suspect]
     Active Substance: ESZOPICLONE
     Indication: Initial insomnia
     Route: 065
  2. ESZOPICLONE [Suspect]
     Active Substance: ESZOPICLONE
     Indication: Middle insomnia
  3. MIRTAZAPINE [Concomitant]
     Active Substance: MIRTAZAPINE
  4. VALERIAN [Concomitant]
     Active Substance: VALERIAN

REACTIONS (1)
  - Drug ineffective [Unknown]
